FAERS Safety Report 7505539-8 (Version None)
Quarter: 2011Q2

REPORT INFORMATION
  Report Type: 
  Country: None (occurrence: None)
  Receive Date: 20110526
  Receipt Date: 20110524
  Transmission Date: 20111010
  Serious: Yes (Hospitalization)
  Sender: FDA-Public Use
  Company Number: JP-SANOFI-AVENTIS-2011SA031675

PATIENT
  Age: 60 Year
  Sex: Female

DRUGS (1)
  1. LASIX [Suspect]
     Route: 048

REACTIONS (2)
  - ALKALOSIS [None]
  - HYPOKALAEMIA [None]
